FAERS Safety Report 11465558 (Version 3)
Quarter: 2016Q1

REPORT INFORMATION
  Report Type: Report from Study
  Country: US (occurrence: US)
  Receive Date: 20150907
  Receipt Date: 20160322
  Transmission Date: 20160525
  Serious: No
  Sender: FDA-Public Use
  Company Number: PHEH2015US006855

PATIENT
  Age: 44 Year
  Sex: Male
  Weight: 99.77 kg

DRUGS (2)
  1. GILENYA [Suspect]
     Active Substance: FINGOLIMOD HYDROCHLORIDE
     Indication: RELAPSING-REMITTING MULTIPLE SCLEROSIS
     Dosage: 0.5 MG, QD
     Route: 048
     Dates: start: 2013
  2. GILENYA [Suspect]
     Active Substance: FINGOLIMOD HYDROCHLORIDE
     Dosage: 0.5 MG, QD
     Route: 048
     Dates: start: 20150516

REACTIONS (8)
  - Dizziness postural [Not Recovered/Not Resolved]
  - Treatment failure [Unknown]
  - Loss of consciousness [Unknown]
  - Somnolence [Recovering/Resolving]
  - Speech disorder [Recovered/Resolved]
  - Multiple sclerosis relapse [Recovered/Resolved]
  - Fatigue [Recovering/Resolving]
  - Central nervous system lesion [Unknown]

NARRATIVE: CASE EVENT DATE: 20160310
